FAERS Safety Report 10639035 (Version 2)
Quarter: 2015Q1

REPORT INFORMATION
  Report Type: Report from Study
  Country: US (occurrence: US)
  Receive Date: 20141208
  Receipt Date: 20150102
  Transmission Date: 20150720
  Serious: Yes (Hospitalization)
  Sender: FDA-Public Use
  Company Number: US-SA-2014SA167067

PATIENT
  Age: 74 Year
  Sex: Female

DRUGS (11)
  1. LANTUS SOLOSTAR [Suspect]
     Active Substance: INSULIN GLARGINE
     Indication: DIABETES MELLITUS
     Dosage: DOSE:70 UNIT(S)
     Route: 065
     Dates: start: 2006
  2. METOCLOPRAMIDE. [Concomitant]
     Active Substance: METOCLOPRAMIDE
  3. FENOFIBRATE. [Concomitant]
     Active Substance: FENOFIBRATE
     Dosage: 54 MG 1/2 2X DAY
  4. ASPIRIN. [Concomitant]
     Active Substance: ASPIRIN
     Dosage: 81 MG
  5. CALCIUM [Concomitant]
     Active Substance: CALCIUM
     Dosage: 1000
  6. VITAMIN D3 [Concomitant]
     Active Substance: CHOLECALCIFEROL
  7. METOPROLOL [Concomitant]
     Active Substance: METOPROLOL
     Dosage: 1/2 2X DAY
  8. FISH OIL [Concomitant]
     Active Substance: FISH OIL
  9. SOLOSTAR [Concomitant]
     Active Substance: DEVICE
  10. HUMALOG [Concomitant]
     Active Substance: INSULIN LISPRO
  11. ENALAPRIL MALEATE/HYDROCHLOROTHIAZIDE [Concomitant]

REACTIONS (1)
  - Thrombosis [Unknown]
